FAERS Safety Report 15335284 (Version 5)
Quarter: 2020Q2

REPORT INFORMATION
  Report Type: Spontaneous
  Country: DE (occurrence: DE)
  Receive Date: 20180830
  Receipt Date: 20200528
  Transmission Date: 20200713
  Serious: Yes (Hospitalization, Other)
  Sender: FDA-Public Use
  Company Number: PHHY2018DE082559

PATIENT
  Age: 39 Year
  Sex: Female
  Weight: 54 kg

DRUGS (7)
  1. HERCEPTIN [Suspect]
     Active Substance: TRASTUZUMAB
     Indication: HER2 POSITIVE BREAST CANCER
     Dosage: 6 MG/KG, Q3W
     Route: 042
     Dates: start: 20160527
  2. LONQUEX [Suspect]
     Active Substance: LIPEGFILGRASTIM
     Indication: BREAST CANCER
     Dosage: 6 MG, UNK (D2DATE OF LAST DOSE PRIOR TO SAE ON 20 OCT 2016)
     Route: 058
     Dates: start: 20160617
  3. NOVALGIN [Concomitant]
     Indication: PAIN
     Dosage: UNK
     Route: 048
  4. IBUPROFEN. [Concomitant]
     Active Substance: IBUPROFEN
     Indication: PAIN
     Dosage: 600 MG, QD
     Route: 048
     Dates: start: 20160630
  5. PERTUZUMAB. [Suspect]
     Active Substance: PERTUZUMAB
     Dosage: 420 MG
     Route: 042
     Dates: start: 20161214
  6. DOCETAXEL. [Suspect]
     Active Substance: DOCETAXEL
     Indication: HER2 POSITIVE BREAST CANCER
     Dosage: 75 MG/M2 (DATE OF LAST DOSE PRIOR TO SAE: 09 SEP  2016 DATE OF LAST DOSE PRIOR TO SAE ON 20 OCT 2016
     Route: 042
     Dates: start: 20160527
  7. PERTUZUMAB. [Suspect]
     Active Substance: PERTUZUMAB
     Indication: HER2 POSITIVE BREAST CANCER
     Dosage: DATE OF LAST DOSE PRIOR TO SAE: 09/SEP/2016DATE OF LAST DOSE PRIOR TO EVENT SECOND OCCURENCE OF ANEM
     Route: 042
     Dates: start: 20160527

REACTIONS (26)
  - Hot flush [Recovered/Resolved]
  - Nail toxicity [Recovered/Resolved]
  - Haematoma [Recovered/Resolved]
  - Neutropenia [Recovered/Resolved]
  - Polyneuropathy [Recovered/Resolved]
  - Decreased appetite [Recovered/Resolved]
  - Alopecia [Recovered/Resolved]
  - Vascular device infection [Unknown]
  - Hypokinesia [Recovered/Resolved]
  - Diarrhoea [Recovered/Resolved]
  - Abdominal pain [Recovered/Resolved]
  - Fatigue [Recovered/Resolved with Sequelae]
  - Swelling [Unknown]
  - Vaginal infection [Recovered/Resolved with Sequelae]
  - Epistaxis [Recovered/Resolved]
  - Dizziness [Recovered/Resolved with Sequelae]
  - Tinnitus [Recovered/Resolved]
  - Panic attack [Recovered/Resolved]
  - Anaemia [Recovered/Resolved]
  - Paraesthesia [Recovered/Resolved]
  - Pain [Unknown]
  - Haematoma [Recovered/Resolved]
  - Post-traumatic pain [Not Recovered/Not Resolved]
  - Anal fissure [Recovered/Resolved]
  - Hot flush [Recovered/Resolved]
  - Dyspnoea [Recovered/Resolved with Sequelae]

NARRATIVE: CASE EVENT DATE: 20160527
